FAERS Safety Report 8884655 (Version 1)
Quarter: 2012Q4

REPORT INFORMATION
  Report Type: 
  Country: US (occurrence: US)
  Receive Date: 20121104
  Receipt Date: 20121104
  Transmission Date: 20130627
  Serious: Yes (Other)
  Sender: FDA-Public Use
  Company Number: PHEH2012US019925

PATIENT

DRUGS (1)
  1. OXCARBAZEPINE [Suspect]
     Dosage: UNK UKN, UNK

REACTIONS (2)
  - Leukocytosis [Unknown]
  - Neutropenia [Unknown]
